FAERS Safety Report 6134124-8 (Version None)
Quarter: 2009Q1

REPORT INFORMATION
  Report Type: 
  Country: None (occurrence: None)
  Receive Date: 20090326
  Receipt Date: 20090313
  Transmission Date: 20090719
  Serious: Yes (Other)
  Sender: FDA-Public Use
  Company Number: US-GENENTECH-279799

PATIENT
  Age: 19 Year
  Sex: Female

DRUGS (4)
  1. ACTIVASE [Suspect]
     Indication: CEREBRAL VENOUS THROMBOSIS
     Dosage: UNK
     Route: 042
  2. HEPARIN [Suspect]
     Indication: CEREBRAL VENOUS THROMBOSIS
     Dosage: UNK
     Route: 041
  3. VITAMIN B-12 [Concomitant]
     Indication: VITAMIN B12 DEFICIENCY
     Dosage: UNK
  4. ORAL CONTRACEPTIVES NOS [Concomitant]
     Indication: CONTRACEPTION
     Dosage: UNK
     Route: 048

REACTIONS (3)
  - DEEP VEIN THROMBOSIS [None]
  - INTRACRANIAL PRESSURE INCREASED [None]
  - STUPOR [None]
